FAERS Safety Report 21171911 (Version 1)
Quarter: 2022Q3

REPORT INFORMATION
  Report Type: Spontaneous
  Country: CN (occurrence: CN)
  Receive Date: 20220804
  Receipt Date: 20220804
  Transmission Date: 20221027
  Serious: Yes (Other)
  Sender: FDA-Public Use
  Company Number: CN-PFIZER INC-PV202200035730

PATIENT
  Age: 29 Year
  Sex: Female
  Weight: 68 kg

DRUGS (1)
  1. METHOTREXATE SODIUM [Suspect]
     Active Substance: METHOTREXATE SODIUM
     Indication: Abortion induced
     Dosage: 50 MG, 1X/DAY, A TOTAL OF 2 DAYS
     Route: 030
     Dates: start: 20220717, end: 20220718

REACTIONS (6)
  - Nausea [Recovering/Resolving]
  - Off label use [Recovering/Resolving]
  - Vomiting [Recovering/Resolving]
  - Appetite disorder [Unknown]
  - Myalgia [Unknown]
  - Lethargy [Unknown]

NARRATIVE: CASE EVENT DATE: 20220717
